FAERS Safety Report 23006240 (Version 3)
Quarter: 2024Q2

REPORT INFORMATION
  Report Type: Report from Study
  Country: GB (occurrence: GB)
  Receive Date: 20230929
  Receipt Date: 20240403
  Transmission Date: 20240715
  Serious: Yes (Death, Hospitalization)
  Sender: FDA-Public Use
  Company Number: GB-002147023-NVSC2023GB209712

PATIENT
  Sex: Male

DRUGS (5)
  1. PLUVICTO [Suspect]
     Active Substance: LUTETIUM LU-177 VIPIVOTIDE TETRAXETAN
     Indication: Hormone-refractory prostate cancer
     Dosage: UNK (RECEIVED 4 CYCLES)
     Route: 065
     Dates: end: 20230706
  2. PLUVICTO [Suspect]
     Active Substance: LUTETIUM LU-177 VIPIVOTIDE TETRAXETAN
     Dosage: 7225 MBQ, CYCLIC
     Route: 042
     Dates: start: 20230303
  3. PLUVICTO [Suspect]
     Active Substance: LUTETIUM LU-177 VIPIVOTIDE TETRAXETAN
     Dosage: 7464 MBQ, CYCLIC
     Route: 042
     Dates: start: 20230413
  4. PLUVICTO [Suspect]
     Active Substance: LUTETIUM LU-177 VIPIVOTIDE TETRAXETAN
     Dosage: 7208 MBQ, CYCLIC
     Route: 042
     Dates: start: 20230525
  5. PLUVICTO [Suspect]
     Active Substance: LUTETIUM LU-177 VIPIVOTIDE TETRAXETAN
     Dosage: 7208 MBQ, CYCLIC
     Route: 042
     Dates: start: 20230716

REACTIONS (6)
  - Death [Fatal]
  - General physical health deterioration [Unknown]
  - Haemoglobin decreased [Unknown]
  - Blood alkaline phosphatase increased [Unknown]
  - Creatinine renal clearance decreased [Unknown]
  - Prostatic specific antigen abnormal [Unknown]
